FAERS Safety Report 15799640 (Version 4)
Quarter: 2019Q2

REPORT INFORMATION
  Report Type: Report from Study
  Country: EC (occurrence: EC)
  Receive Date: 20190108
  Receipt Date: 20190430
  Transmission Date: 20190711
  Serious: Yes (Hospitalization, Other)
  Sender: FDA-Public Use
  Company Number: PHHY2018EC199973

PATIENT
  Age: 60 Year
  Sex: Female
  Weight: 54 kg

DRUGS (2)
  1. SANDOSTATIN LAR DEPOT [Suspect]
     Active Substance: OCTREOTIDE ACETATE
     Indication: ACROMEGALY
     Dosage: 20 MG, QMO
     Route: 030
     Dates: start: 20151228
  2. LEVOTHYROXINE. [Concomitant]
     Active Substance: LEVOTHYROXINE
     Indication: HYPOTHYROIDISM
     Dosage: 50 UG, QD (FASTING IN THE MORNING)
     Route: 048
     Dates: start: 201311

REACTIONS (18)
  - Cognitive disorder [Unknown]
  - Hyperlipidaemia [Recovered/Resolved]
  - Pituitary tumour benign [Unknown]
  - Gliosis [Unknown]
  - Decreased appetite [Recovered/Resolved]
  - Ischaemic stroke [Unknown]
  - Weight decreased [Recovered/Resolved]
  - Sleep apnoea syndrome [Recovering/Resolving]
  - Pain [Unknown]
  - Balance disorder [Recovered/Resolved]
  - Varicose vein [Recovered/Resolved]
  - Speech disorder [Recovered/Resolved]
  - Amnesia [Recovered/Resolved]
  - Thrombosis [Recovered/Resolved]
  - Sleep disorder [Unknown]
  - Hypertension [Unknown]
  - General physical health deterioration [Recovered/Resolved]
  - Stress [Unknown]

NARRATIVE: CASE EVENT DATE: 201608
